FAERS Safety Report 11991932 (Version 1)
Quarter: 2016Q1

REPORT INFORMATION
  Report Type: Spontaneous
  Country: US (occurrence: None)
  Receive Date: 20160202
  Receipt Date: 20160202
  Transmission Date: 20160526
  Serious: No
  Sender: FDA-Public Use
  Company Number: None

PATIENT
  Age: 51 Year
  Sex: Female
  Weight: 52.62 kg

DRUGS (37)
  1. ORAL TRANSMUCOSAL FENTANYL LOZENGE MALLINCKRODT, INC. [Suspect]
     Active Substance: FENTANYL CITRATE
     Indication: PAIN
     Dosage: 600 MCG, 1 LOZENGE, PRN, SUCKED AND ROLLED BETWEEN CHEEK AND GUM, ROTATED SIDE TO SIDE, UNTIL GONE.
     Dates: start: 2006
  2. BACLOFEN. [Concomitant]
     Active Substance: BACLOFEN
  3. CORTEF [Concomitant]
     Active Substance: HYDROCORTISONE
  4. LINZESS [Concomitant]
     Active Substance: LINACLOTIDE
  5. TYLENOL [Concomitant]
     Active Substance: ACETAMINOPHEN
  6. SPIRIVA [Concomitant]
     Active Substance: TIOTROPIUM BROMIDE MONOHYDRATE
  7. ZOFRAN [Concomitant]
     Active Substance: ONDANSETRON HYDROCHLORIDE
  8. MELATONIN [Concomitant]
     Active Substance: MELATONIN
  9. ACIPHEX [Concomitant]
     Active Substance: RABEPRAZOLE SODIUM
  10. LOPRESSOR [Concomitant]
     Active Substance: METOPROLOL TARTRATE
  11. FENGTANYL TRANSMUCOSAL LOZENGE [Concomitant]
  12. SOLU-CORTEF (ACT-O-VIAL) [Concomitant]
  13. ORAL TRANSMUCOSAL FENTANYL LOZENGE MALLINCKRODT, INC. [Suspect]
     Active Substance: FENTANYL CITRATE
     Indication: MULTIPLE ALLERGIES
     Dosage: 600 MCG, 1 LOZENGE, PRN, SUCKED AND ROLLED BETWEEN CHEEK AND GUM, ROTATED SIDE TO SIDE, UNTIL GONE.
     Dates: start: 2006
  14. NORTRIPTYLINE [Concomitant]
     Active Substance: NORTRIPTYLINE
  15. SINGULAIR [Concomitant]
     Active Substance: MONTELUKAST SODIUM
  16. SYNTHROID [Concomitant]
     Active Substance: LEVOTHYROXINE SODIUM
  17. RETIN-A [Concomitant]
     Active Substance: TRETINOIN
  18. DONNATAL ELIXIR [Concomitant]
  19. TORADOL [Concomitant]
     Active Substance: KETOROLAC TROMETHAMINE
  20. VITAMIN B12 [Concomitant]
     Active Substance: CYANOCOBALAMIN
  21. PLAQUENIL [Concomitant]
     Active Substance: HYDROXYCHLOROQUINE SULFATE
  22. VAGIFEM [Concomitant]
     Active Substance: ESTRADIOL
  23. VITAMIN D [Concomitant]
     Active Substance: CHOLECALCIFEROL
  24. ATARAX [Concomitant]
     Active Substance: HYDROXYZINE\HYDROXYZINE HYDROCHLORIDE
  25. PHENERGAN [Concomitant]
     Active Substance: PROMETHAZINE HYDROCHLORIDE
  26. XOPENEX [Concomitant]
     Active Substance: LEVALBUTEROL HYDROCHLORIDE
  27. DIFLUCAN TROCHE [Concomitant]
  28. FENTANYL TRANSDERMAL SYSTEM [Concomitant]
     Active Substance: FENTANYL
  29. EPIPEN JR [Concomitant]
     Active Substance: EPINEPHRINE
  30. AMBIEN [Concomitant]
     Active Substance: ZOLPIDEM TARTRATE
  31. RESTASIS [Concomitant]
     Active Substance: CYCLOSPORINE
  32. VITAMIN C [Concomitant]
     Active Substance: ASCORBIC ACID
  33. MAGNESIUM CITRATE. [Concomitant]
     Active Substance: MAGNESIUM CITRATE
  34. MIRALAX [Concomitant]
     Active Substance: POLYETHYLENE GLYCOL 3350
  35. ZOMIG NS [Concomitant]
  36. COMPAZINE [Concomitant]
     Active Substance: PROCHLORPERAZINE MALEATE
  37. VALIUM [Concomitant]
     Active Substance: DIAZEPAM

REACTIONS (5)
  - Product substitution issue [None]
  - Product packaging issue [None]
  - Product physical consistency issue [None]
  - Administration site irritation [None]
  - Product solubility abnormal [None]

NARRATIVE: CASE EVENT DATE: 20151222
